FAERS Safety Report 15721341 (Version 1)
Quarter: 2018Q4

REPORT INFORMATION
  Report Type: Spontaneous
  Country: US (occurrence: US)
  Receive Date: 20181214
  Receipt Date: 20181214
  Transmission Date: 20190205
  Serious: No
  Sender: FDA-Public Use
  Company Number: US-GRANULES INDIA LIMITED-2060171

PATIENT
  Age: 85 Year
  Sex: Male
  Weight: 76.82 kg

DRUGS (2)
  1. MELATONIN RAPID RELEASE GEL CAPS, 5 MG [Suspect]
     Active Substance: MELATONIN
     Indication: SLEEP DISORDER
     Route: 065
     Dates: start: 20181128
  2. FLOMAX [Concomitant]
     Active Substance: TAMSULOSIN HYDROCHLORIDE
     Route: 065

REACTIONS (1)
  - Dizziness [Not Recovered/Not Resolved]

NARRATIVE: CASE EVENT DATE: 20181129
